FAERS Safety Report 9275316 (Version 1)
Quarter: 2013Q2

REPORT INFORMATION
  Report Type: Spontaneous
  Country: DE (occurrence: DE)
  Receive Date: 20130507
  Receipt Date: 20130507
  Transmission Date: 20140414
  Serious: Yes (Other)
  Sender: FDA-Public Use
  Company Number: DE-TEVA-400786GER

PATIENT
  Age: 73 Year
  Sex: Female
  Weight: 80 kg

DRUGS (5)
  1. MIRTAZAPINE [Suspect]
     Indication: DEPRESSION
     Dosage: 30 MILLIGRAM DAILY;
     Route: 048
     Dates: start: 20121115, end: 20130118
  2. JURNISTA [Concomitant]
     Indication: PAIN
     Route: 048
     Dates: start: 201201
  3. CLOMIPRAMIN [Concomitant]
     Indication: DEPRESSION
     Route: 048
     Dates: start: 2010
  4. PROMETHAZIN [Concomitant]
     Indication: RESTLESSNESS
     Route: 048
     Dates: start: 20121115, end: 20130118
  5. IBUPROFEN [Concomitant]
     Route: 048

REACTIONS (2)
  - Haemorrhage subcutaneous [Not Recovered/Not Resolved]
  - Haemorrhage [Not Recovered/Not Resolved]
